FAERS Safety Report 10096732 (Version 1)
Quarter: 2014Q2

REPORT INFORMATION
  Report Type: Spontaneous
  Country: US (occurrence: US)
  Receive Date: 20140422
  Receipt Date: 20140422
  Transmission Date: 20141212
  Serious: Yes (Hospitalization)
  Sender: FDA-Public Use
  Company Number: GXBR2014US001122

PATIENT
  Age: 14 Year
  Sex: Female
  Weight: 63.49 kg

DRUGS (5)
  1. FLUOXETINE CAPSULES [Suspect]
     Indication: ANXIETY
     Dosage: 20 MG, QD
     Route: 048
     Dates: start: 20140328, end: 20140402
  2. FLUOXETINE CAPSULES [Suspect]
     Dosage: 10 MG, QD
     Route: 048
     Dates: start: 20140228, end: 20140327
  3. FLUOXETINE CAPSULES [Suspect]
     Dosage: 10 MG, QD
     Route: 048
     Dates: start: 20140403, end: 20140408
  4. ARMOUR THYROID [Concomitant]
     Indication: HYPOTHYROIDISM
     Dosage: 0.15 GRAINS, UNK
  5. PROGESTERONE [Concomitant]
     Indication: PROGESTERONE DECREASED
     Dosage: UNK DF, UNK

REACTIONS (4)
  - Dystonia [Recovering/Resolving]
  - Muscle twitching [Recovering/Resolving]
  - Tremor [Recovering/Resolving]
  - Eructation [Recovering/Resolving]
